FAERS Safety Report 7236064-X (Version None)
Quarter: 2011Q1

REPORT INFORMATION
  Report Type: 
  Country: None (occurrence: None)
  Receive Date: 20110120
  Receipt Date: 20110110
  Transmission Date: 20110831
  Serious: Yes (Hospitalization, Other)
  Sender: FDA-Public Use
  Company Number: US-PFIZER INC-2010154484

PATIENT
  Sex: Male

DRUGS (8)
  1. CHANTIX [Suspect]
     Indication: TOBACCO ABUSE
     Dosage: STARTER PACK AND CONTINUING PACKS
     Dates: start: 20080701, end: 20090401
  2. LUNESTA [Concomitant]
     Indication: INSOMNIA
     Dosage: UNK
     Dates: start: 20060601, end: 20090501
  3. WELLBUTRIN [Concomitant]
     Indication: DEPRESSION
     Dosage: UNK
     Dates: start: 20030101, end: 20090501
  4. AMLODIPINE [Concomitant]
     Indication: HYPERTENSION
     Dosage: UNK
     Dates: start: 20080301, end: 20090301
  5. TRICOR [Concomitant]
     Indication: BLOOD CHOLESTEROL INCREASED
     Dosage: UNK
     Dates: start: 20040801, end: 20090501
  6. HYZAAR [Concomitant]
     Indication: HYPERTENSION
     Dosage: UNK
     Dates: start: 20080501, end: 20090501
  7. NEXIUM [Concomitant]
     Indication: GASTROOESOPHAGEAL REFLUX DISEASE
     Dosage: UNK
     Dates: start: 20040501, end: 20090501
  8. AMITRIPTYLINE [Concomitant]
     Indication: DEPRESSION
     Dosage: UNK
     Dates: start: 20081101

REACTIONS (18)
  - HOMICIDAL IDEATION [None]
  - MENTAL DISORDER [None]
  - AGGRESSION [None]
  - IRRITABILITY [None]
  - SUICIDAL IDEATION [None]
  - BIPOLAR DISORDER [None]
  - MAJOR DEPRESSION [None]
  - SCHIZOAFFECTIVE DISORDER BIPOLAR TYPE [None]
  - COGNITIVE DISORDER [None]
  - ANXIETY [None]
  - NIGHTMARE [None]
  - HALLUCINATION, AUDITORY [None]
  - DELIRIUM [None]
  - PARANOID PERSONALITY DISORDER [None]
  - MEMORY IMPAIRMENT [None]
  - PSYCHOTIC DISORDER [None]
  - DELUSIONAL DISORDER, PERSECUTORY TYPE [None]
  - SCHIZOID PERSONALITY DISORDER [None]
